FAERS Safety Report 11033536 (Version 3)
Quarter: 2015Q3

REPORT INFORMATION
  Report Type: Spontaneous
  Country: US (occurrence: US)
  Receive Date: 20150415
  Receipt Date: 20150821
  Transmission Date: 20151125
  Serious: Yes (Death, Hospitalization, Other)
  Sender: FDA-Public Use
  Company Number: US-009507513-1504USA015488

PATIENT
  Sex: Female
  Weight: 63.39 kg

DRUGS (4)
  1. JANUVIA [Suspect]
     Active Substance: SITAGLIPTIN PHOSPHATE
     Dosage: 100 MG,DAILY
     Route: 048
     Dates: start: 20080104, end: 20081204
  2. JANUVIA [Suspect]
     Active Substance: SITAGLIPTIN PHOSPHATE
     Indication: TYPE 2 DIABETES MELLITUS
     Dosage: 100 MG, DAILY
     Route: 048
     Dates: start: 20070402, end: 20070501
  3. JANUVIA [Suspect]
     Active Substance: SITAGLIPTIN PHOSPHATE
     Dosage: 100 MG,DAILY
     Route: 048
     Dates: start: 20090521, end: 20090724
  4. BYETTA [Suspect]
     Active Substance: EXENATIDE
     Dosage: 10 MICROGRAM, BID
     Dates: start: 20081027, end: 20090324

REACTIONS (38)
  - Upper gastrointestinal haemorrhage [Unknown]
  - Hyperlipidaemia [Unknown]
  - Syncope [Unknown]
  - Mucosal dryness [Unknown]
  - Lower limb fracture [Unknown]
  - Pancreatic carcinoma metastatic [Fatal]
  - Abdominal mass [Unknown]
  - Metastases to liver [Unknown]
  - Large intestine polyp [Unknown]
  - Diverticulum [Unknown]
  - Pulmonary mass [Unknown]
  - Haematochezia [Unknown]
  - Neuropathy peripheral [Unknown]
  - Pallor [Unknown]
  - Depression [Unknown]
  - Haemorrhoids [Unknown]
  - Hypokalaemia [Unknown]
  - Aphasia [Unknown]
  - Constipation [Unknown]
  - Hypertension [Unknown]
  - Asthenia [Unknown]
  - Electrocardiogram Q waves [Unknown]
  - Dyslipidaemia [Unknown]
  - Renal failure [Unknown]
  - Vertigo [Unknown]
  - Weight decreased [Unknown]
  - Serum ferritin increased [Unknown]
  - Cholelithiasis [Unknown]
  - Memory impairment [Unknown]
  - Open reduction of fracture [Unknown]
  - Chronic kidney disease [Not Recovered/Not Resolved]
  - Pancreatic cyst [Unknown]
  - Fatigue [Unknown]
  - Fracture treatment [Unknown]
  - Biopsy pancreas [Unknown]
  - Pulmonary mass [Unknown]
  - Dizziness [Unknown]
  - Pain [Unknown]

NARRATIVE: CASE EVENT DATE: 20090317
